FAERS Safety Report 9789467 (Version 2)
Quarter: 2014Q1

REPORT INFORMATION
  Report Type: Report from Study
  Country: JP (occurrence: JP)
  Receive Date: 20131231
  Receipt Date: 20140114
  Transmission Date: 20141002
  Serious: No
  Sender: FDA-Public Use
  Company Number: JP-AMGEN-JPNCT2013090957

PATIENT
  Age: 51 Year
  Sex: Male
  Weight: 73 kg

DRUGS (16)
  1. ROMIPLATE [Suspect]
     Indication: IMMUNE THROMBOCYTOPENIC PURPURA
     Dosage: 2 MUG/KG, QD
     Route: 058
     Dates: start: 20110812
  2. PREDONINE                          /00016203/ [Concomitant]
     Indication: IMMUNE THROMBOCYTOPENIC PURPURA
     Dosage: 160 MG, UNK
     Route: 041
     Dates: start: 20110803, end: 20110808
  3. PRIDOL                             /00049602/ [Concomitant]
     Indication: IMMUNE THROMBOCYTOPENIC PURPURA
     Dosage: 1000 MG, UNK
     Route: 041
     Dates: start: 20110809
  4. PREDNISOLONE [Concomitant]
     Indication: IMMUNE THROMBOCYTOPENIC PURPURA
     Dosage: 80 MG, UNK
     Route: 048
     Dates: start: 20110827
  5. ONCOVIN [Concomitant]
     Indication: IMMUNE THROMBOCYTOPENIC PURPURA
     Dosage: 2 MG, UNK
     Route: 065
     Dates: start: 20110810, end: 20110824
  6. RITUXAN [Concomitant]
     Indication: IMMUNE THROMBOCYTOPENIC PURPURA
     Dosage: 730 MG, UNK
     Route: 065
     Dates: start: 20110820, end: 20110916
  7. PAXIL                              /00830802/ [Concomitant]
     Indication: DEPRESSION
     Dosage: UNK
     Route: 048
  8. TAKEPRON [Concomitant]
     Indication: PROPHYLAXIS
     Dosage: UNK
     Route: 048
  9. DIFLUCAN [Concomitant]
     Indication: PROPHYLAXIS
     Dosage: UNK
     Route: 065
  10. BAKTAR [Concomitant]
     Indication: PROPHYLAXIS
     Dosage: UNK
     Route: 048
  11. JZOLOFT [Concomitant]
     Indication: DEPRESSION
     Dosage: UNK
     Route: 048
  12. WYPAX [Concomitant]
     Indication: DEPRESSION
     Dosage: UNK
     Route: 048
  13. POLARAMINE [Concomitant]
     Indication: PROPHYLAXIS
     Dosage: UNK
     Route: 065
  14. JANUVIA [Concomitant]
     Indication: DEPRESSION
     Dosage: UNK
     Route: 048
  15. ITRIZOLE [Concomitant]
     Indication: PROPHYLAXIS
     Dosage: UNK
     Route: 048
  16. DEPAS [Concomitant]
     Indication: DEPRESSION
     Dosage: UNK
     Route: 048

REACTIONS (2)
  - Conjunctivitis [Recovered/Resolved]
  - Diabetes mellitus [Recovered/Resolved]
